FAERS Safety Report 7446851-0 (Version None)
Quarter: 2011Q2

REPORT INFORMATION
  Report Type: 
  Country: None (occurrence: None)
  Receive Date: 20110429
  Receipt Date: 20110419
  Transmission Date: 20111010
  Serious: Yes (Other)
  Sender: FDA-Public Use
  Company Number: JP-BRISTOL-MYERS SQUIBB COMPANY-15648553

PATIENT

DRUGS (2)
  1. TAXOL [Suspect]
     Indication: LARGE INTESTINE CARCINOMA
  2. TEGAFUR + GIMERACIL + OTERACIL POTASSIUM [Suspect]
     Indication: LARGE INTESTINE CARCINOMA

REACTIONS (3)
  - HYPOAESTHESIA [None]
  - PALMAR-PLANTAR ERYTHRODYSAESTHESIA SYNDROME [None]
  - STOMATITIS [None]
